FAERS Safety Report 8422954-9 (Version None)
Quarter: 2012Q2

REPORT INFORMATION
  Report Type: 
  Country: None (occurrence: None)
  Receive Date: 20120608
  Receipt Date: 20120528
  Transmission Date: 20120825
  Serious: Yes (Hospitalization)
  Sender: FDA-Public Use
  Company Number: JP-GLAXOSMITHKLINE-B0805336A

PATIENT
  Age: 74 Year
  Sex: Female

DRUGS (3)
  1. REQUIP [Suspect]
     Indication: PARKINSON'S DISEASE
     Route: 048
  2. PRAMIPEXOLE DIHYDROCHLORIDE [Concomitant]
     Route: 048
  3. UNKNOWN DRUG [Concomitant]
     Route: 065

REACTIONS (3)
  - FRACTURE [None]
  - FALL [None]
  - SUDDEN ONSET OF SLEEP [None]
